FAERS Safety Report 7733405-1 (Version None)
Quarter: 2011Q3

REPORT INFORMATION
  Report Type: 
  Country: None (occurrence: None)
  Receive Date: 20110817
  Receipt Date: 20110504
  Transmission Date: 20111222
  Serious: Yes (Life-Threatening, Hospitalization, Other)
  Sender: FDA-Public Use
  Company Number: 20109841

PATIENT
  Sex: Female

DRUGS (1)
  1. LIORESAL [Suspect]
     Indication: MUSCLE SPASTICITY
     Dosage: DAILY, INTRATHECAL
     Route: 037

REACTIONS (10)
  - LETHARGY [None]
  - HOSPITALISATION [None]
  - MUSCLE SPASTICITY [None]
  - HYPERTONIA [None]
  - AGITATION [None]
  - SOMNOLENCE [None]
  - RESPIRATORY DISORDER [None]
  - COGNITIVE DISORDER [None]
  - UNDERDOSE [None]
  - PAIN [None]
